FAERS Safety Report 6638258-0 (Version None)
Quarter: 2010Q1

REPORT INFORMATION
  Report Type: 
  Country: None (occurrence: None)
  Receive Date: 20100316
  Receipt Date: 20100316
  Transmission Date: 20100710
  Serious: Yes (Hospitalization)
  Sender: FDA-Public Use
  Company Number: None

PATIENT
  Age: 30 Year
  Sex: Female
  Weight: 60 kg

DRUGS (1)
  1. VALPROIC ACID [Suspect]
     Indication: BIPOLAR DISORDER
     Dosage: 3000 MG DAILY ORAL 047
     Route: 048

REACTIONS (5)
  - COAGULOPATHY [None]
  - DYSARTHRIA [None]
  - DYSPRAXIA [None]
  - JAUNDICE [None]
  - MENTAL STATUS CHANGES [None]
